FAERS Safety Report 5597834-7 (Version None)
Quarter: 2007Q4

REPORT INFORMATION
  Report Type: 
  Country: None (occurrence: None)
  Receive Date: 20071221
  Receipt Date: 20070228
  Transmission Date: 20080405
  Serious: Yes (Hospitalization)
  Sender: FDA-Public Use
  Company Number: US-2006-026247

PATIENT
  Age: 55 Year
  Sex: Female
  Weight: 68 kg

DRUGS (2)
  1. CLIMARA PRO [Suspect]
     Indication: HORMONE REPLACEMENT THERAPY
     Dosage: 0.045/0.015MG/DAY, CONT, TRANSDERMAL
     Route: 062
     Dates: start: 20050621, end: 20060905
  2. ASPIRIN [Concomitant]

REACTIONS (1)
  - BREAST CANCER [None]
